FAERS Safety Report 26169889 (Version 1)
Quarter: 2025Q4

REPORT INFORMATION
  Report Type: Spontaneous
  Country: CN (occurrence: CN)
  Receive Date: 20251217
  Receipt Date: 20251217
  Transmission Date: 20260118
  Serious: Yes (Other)
  Sender: ELI LILLY AND COMPANY
  Company Number: CN-ELI_LILLY_AND_COMPANY-CN202512016560

PATIENT
  Age: 58 Year
  Sex: Female

DRUGS (4)
  1. ABEMACICLIB [Suspect]
     Active Substance: ABEMACICLIB
     Indication: Breast cancer
     Dosage: 150 MG, BID
     Route: 048
     Dates: start: 20250905, end: 20251125
  2. RIVAROXABAN [Suspect]
     Active Substance: RIVAROXABAN
     Indication: Breast cancer
     Dosage: 10 MG, SINGLE
     Route: 048
     Dates: start: 20251031, end: 20251125
  3. RIVAROXABAN [Suspect]
     Active Substance: RIVAROXABAN
     Indication: Coagulopathy
  4. LETROZOLE [Concomitant]
     Active Substance: LETROZOLE
     Indication: Breast cancer
     Dosage: 2.5 MG, SINGLE
     Route: 048
     Dates: start: 20250905, end: 20251125

REACTIONS (3)
  - Myelosuppression [Recovering/Resolving]
  - Thrombosis [Recovering/Resolving]
  - Anaemia [Recovering/Resolving]

NARRATIVE: CASE EVENT DATE: 20251125
